FAERS Safety Report 6588727-7 (Version None)
Quarter: 2010Q1

REPORT INFORMATION
  Report Type: 
  Country: None (occurrence: None)
  Receive Date: 20100218
  Receipt Date: 20100209
  Transmission Date: 20100710
  Serious: Yes (Other)
  Sender: FDA-Public Use
  Company Number: AU-JNJFOC-20100205537

PATIENT
  Sex: Male
  Weight: 73 kg

DRUGS (1)
  1. CONCERTA [Suspect]
     Indication: ABNORMAL BEHAVIOUR
     Route: 065

REACTIONS (3)
  - BACK PAIN [None]
  - CYSTITIS NONINFECTIVE [None]
  - HAEMATURIA [None]
